FAERS Safety Report 8839740 (Version 1)
Quarter: 2012Q4

REPORT INFORMATION
  Report Type: Spontaneous
  Country: CH (occurrence: None)
  Receive Date: 20121011
  Receipt Date: 20121011
  Transmission Date: 20130627
  Serious: Yes (Hospitalization)
  Sender: FDA-Public Use
  Company Number: 20120617

PATIENT
  Age: 14 Year
  Sex: Male
  Weight: 54.4 kg

DRUGS (3)
  1. VENOFER [Suspect]
     Indication: IRON DEFICIENCY ANEMIA
     Dosage: 300 mg 300 ml NS over 3 hrs intravenous drip
     Route: 041
     Dates: start: 20120606, end: 20120606
  2. VENOFER [Suspect]
     Indication: CROHN^S DISEASE
     Dosage: 300 mg 300 ml NS over 3 hrs intravenous drip
     Route: 041
     Dates: start: 20120606, end: 20120606
  3. METHOTREXATE [Concomitant]

REACTIONS (2)
  - Pyrexia [None]
  - Rhinorrhoea [None]
